FAERS Safety Report 18638188 (Version 1)
Quarter: 2020Q4

REPORT INFORMATION
  Report Type: Spontaneous
  Country: FR (occurrence: FR)
  Receive Date: 20201218
  Receipt Date: 20201218
  Transmission Date: 20210114
  Serious: Yes (Hospitalization)
  Sender: FDA-Public Use
  Company Number: FR-009507513-2012FRA006184

PATIENT
  Age: 67 Year
  Sex: Female

DRUGS (10)
  1. RIBAVIRIN. [Suspect]
     Active Substance: RIBAVIRIN
     Dosage: UNK
     Route: 048
     Dates: start: 20060326, end: 200608
  2. RIBAVIRIN. [Suspect]
     Active Substance: RIBAVIRIN
     Dosage: UNK
     Dates: start: 20110907, end: 20120808
  3. PEGASYS [Concomitant]
     Active Substance: PEGINTERFERON ALFA-2A
     Dosage: UNK
     Dates: start: 20140610, end: 20140805
  4. VIRAFERONPEG [Suspect]
     Active Substance: PEGINTERFERON ALFA-2B
     Dosage: UNK
     Dates: start: 20060326, end: 200608
  5. PEGASYS [Concomitant]
     Active Substance: PEGINTERFERON ALFA-2A
     Dosage: UNK
     Dates: start: 200611, end: 20070628
  6. PEGASYS [Concomitant]
     Active Substance: PEGINTERFERON ALFA-2A
     Dosage: UNK
     Dates: start: 20110907, end: 20120808
  7. OLYSIO [Concomitant]
     Active Substance: SIMEPREVIR
     Dosage: UNK
     Dates: start: 20140806, end: 20140902
  8. RIBAVIRIN. [Suspect]
     Active Substance: RIBAVIRIN
     Dosage: UNK
     Dates: start: 200611, end: 20070628
  9. RIBAVIRIN. [Suspect]
     Active Substance: RIBAVIRIN
     Dosage: UNK
     Dates: start: 20140619, end: 20140805
  10. SOVALDI [Concomitant]
     Active Substance: SOFOSBUVIR
     Dosage: UNK
     Dates: start: 20140610, end: 20140902

REACTIONS (1)
  - Transfusion [Not Recovered/Not Resolved]

NARRATIVE: CASE EVENT DATE: 20191127
